FAERS Safety Report 4579205-5 (Version None)
Quarter: 2005Q1

REPORT INFORMATION
  Report Type: 
  Country: None (occurrence: None)
  Receive Date: 20050209
  Receipt Date: 20050209
  Transmission Date: 20050727
  Serious: Yes (Other)
  Sender: FDA-Public Use
  Company Number: None

PATIENT
  Age: 33 Year
  Sex: Female
  Weight: 58.514 kg

DRUGS (1)
  1. ZOLOFT [Suspect]
     Indication: DEPRESSION
     Dosage: 1   DAY   ORAL
     Route: 048
     Dates: start: 20041115, end: 20050208

REACTIONS (19)
  - ABNORMAL DREAMS [None]
  - ANOREXIA [None]
  - COMPULSIONS [None]
  - DIARRHOEA [None]
  - DRUG DEPENDENCE [None]
  - EUPHORIC MOOD [None]
  - INSOMNIA [None]
  - LIBIDO DISORDER [None]
  - MEMORY IMPAIRMENT [None]
  - MENORRHAGIA [None]
  - NERVOUSNESS [None]
  - ORGASM ABNORMAL [None]
  - POLYMENORRHOEA [None]
  - RASH [None]
  - RESTLESSNESS [None]
  - SCAB [None]
  - THINKING ABNORMAL [None]
  - TREMOR [None]
  - WEIGHT DECREASED [None]
